FAERS Safety Report 10095006 (Version 1)
Quarter: 2014Q2

REPORT INFORMATION
  Report Type: Spontaneous
  Country: US (occurrence: US)
  Receive Date: 20140422
  Receipt Date: 20140422
  Transmission Date: 20141212
  Serious: Yes (Hospitalization)
  Sender: FDA-Public Use
  Company Number: US-ACTAVIS-2014-07609

PATIENT
  Age: 61 Year
  Sex: Female

DRUGS (2)
  1. KADIAN (AELLC) [Suspect]
     Indication: PRODUCT USED FOR UNKNOWN INDICATION
     Dosage: UNK, UNKNOWN
     Route: 065
  2. COPAXONE [Suspect]
     Indication: MULTIPLE SCLEROSIS
     Dosage: 20 MG, UNKNOWN
     Route: 065
     Dates: start: 19990901

REACTIONS (2)
  - Renal failure acute [Recovered/Resolved]
  - Toxicity to various agents [Recovered/Resolved]
